FAERS Safety Report 8403020-5 (Version None)
Quarter: 2012Q2

REPORT INFORMATION
  Report Type: 
  Country: None (occurrence: None)
  Receive Date: 20120601
  Receipt Date: 20120522
  Transmission Date: 20120825
  Serious: Yes (Hospitalization)
  Sender: FDA-Public Use
  Company Number: ES-ELI_LILLY_AND_COMPANY-ES201205008258

PATIENT
  Sex: Female
  Weight: 80 kg

DRUGS (7)
  1. OMEPRAZOLE [Concomitant]
     Indication: GASTRIC DISORDER
     Dosage: 1 DF, QD
     Route: 048
  2. ASPIRIN [Concomitant]
     Dosage: 1 DF, QD
     Route: 048
  3. FLUOXETINE HYDROCHLORIDE [Concomitant]
     Indication: DEPRESSION
     Dosage: 1 DF, QD
     Route: 048
  4. FORTEO [Suspect]
     Indication: OSTEOPOROSIS
     Dosage: 20 UG, QD
     Route: 058
     Dates: start: 20111103, end: 20120201
  5. HIDROALTESONA [Concomitant]
     Indication: THYROID DISORDER
     Dosage: 1 DF, BID
     Route: 048
  6. FUROSEMIDE [Concomitant]
     Indication: FLUID RETENTION
     Dosage: 1 DF, OTHER
     Route: 048
  7. LEVOTHROID [Concomitant]
     Indication: THYROID DISORDER
     Dosage: 1 DF, QD
     Route: 048

REACTIONS (1)
  - ABDOMINAL ADHESIONS [None]
